FAERS Safety Report 5592568-7 (Version None)
Quarter: 2008Q1

REPORT INFORMATION
  Report Type: 
  Country: None (occurrence: None)
  Receive Date: 20080111
  Receipt Date: 20071226
  Transmission Date: 20080703
  Serious: Yes (Hospitalization)
  Sender: FDA-Public Use
  Company Number: 2008010011

PATIENT
  Age: 59 Year
  Sex: Female

DRUGS (1)
  1. PENICILLAMINE [Suspect]
     Indication: SYSTEMIC SCLEROSIS
     Dosage: 500 MG (500MG,1 IN 1 D), ORAL
     Route: 048
     Dates: start: 20000101

REACTIONS (11)
  - COUGH [None]
  - DUODENAL STENOSIS [None]
  - DYSPEPSIA [None]
  - DYSPNOEA EXERTIONAL [None]
  - ERUCTATION [None]
  - INTESTINAL DIAPHRAGM DISEASE [None]
  - INTESTINAL STENOSIS [None]
  - NAUSEA [None]
  - VOMITING [None]
  - WEIGHT DECREASED [None]
  - X-RAY GASTROINTESTINAL TRACT ABNORMAL [None]
